FAERS Safety Report 24165635 (Version 2)
Quarter: 2024Q3

REPORT INFORMATION
  Report Type: Report from Study
  Country: KR (occurrence: KR)
  Receive Date: 20240802
  Receipt Date: 20240813
  Transmission Date: 20241017
  Serious: Yes (Death, Hospitalization)
  Sender: ABBVIE
  Company Number: KR-PFIZER INC-PV202400099185

PATIENT
  Age: 77 Year
  Sex: Male
  Weight: 56 kg

DRUGS (13)
  1. AVIBACTAM SODIUM\CEFTAZIDIME [Suspect]
     Active Substance: AVIBACTAM SODIUM\CEFTAZIDIME
     Indication: Abdominal infection
     Dosage: TIME INTERVAL: 0.33333333 DAYS: 2.5 VIALS, 3X/DAY TID, CUMULATIVE DOSE:142.5 DOSAGE FORM
     Route: 042
     Dates: start: 20240618, end: 20240706
  2. ABSTRAL [Concomitant]
     Active Substance: FENTANYL CITRATE
     Indication: Bile duct cancer
     Route: 048
     Dates: start: 20240705, end: 20240716
  3. ALDACTONE [Concomitant]
     Active Substance: SPIRONOLACTONE
     Indication: Product used for unknown indication
     Route: 048
     Dates: start: 20240703, end: 20240716
  4. MIRABEGRON [Concomitant]
     Active Substance: MIRABEGRON
     Indication: Benign prostatic hyperplasia
     Dosage: PROLONGED RELEASE (PR)
     Route: 048
     Dates: start: 20240513, end: 20240719
  5. MIRABEGRON [Concomitant]
     Active Substance: MIRABEGRON
     Indication: Benign prostatic hyperplasia
     Dosage: PROLONGED RELEASE (PR)
     Route: 048
     Dates: start: 20240513, end: 20240719
  6. NORZYME [Concomitant]
     Indication: Gastritis prophylaxis
     Route: 048
     Dates: start: 20240613, end: 20240720
  7. Esoduo [Concomitant]
     Indication: Gastritis prophylaxis
     Route: 048
     Dates: start: 20240707, end: 20240710
  8. NAXEN-F [Concomitant]
     Indication: Infection
     Route: 048
     Dates: start: 20240703, end: 20240716
  9. FLASINYL [Concomitant]
     Indication: Infection
     Route: 048
     Dates: start: 20240707, end: 20240710
  10. URSODIOL [Concomitant]
     Active Substance: URSODIOL
     Indication: Chronic hepatitis
     Route: 048
     Dates: start: 20240610, end: 20240720
  11. KONIL [Concomitant]
     Indication: Hypertension
     Route: 048
     Dates: start: 20240630, end: 20240720
  12. TELMISARTAN [Concomitant]
     Active Substance: TELMISARTAN
     Indication: Hypertension
     Route: 048
     Dates: start: 20240630, end: 20240720
  13. LASIX [Concomitant]
     Active Substance: FUROSEMIDE
     Indication: Product used for unknown indication
     Route: 048
     Dates: start: 20240703, end: 20240716

REACTIONS (2)
  - Bile duct cancer [Fatal]
  - Condition aggravated [Fatal]

NARRATIVE: CASE EVENT DATE: 20240716
